FAERS Safety Report 8279284-8 (Version None)
Quarter: 2012Q2

REPORT INFORMATION
  Report Type: 
  Country: None (occurrence: None)
  Receive Date: 20120412
  Receipt Date: 20120328
  Transmission Date: 20120825
  Serious: Yes (Other)
  Sender: FDA-Public Use
  Company Number: CHPA2012CA006276

PATIENT
  Age: 63 Year
  Sex: Male

DRUGS (1)
  1. OTRIVIN [Suspect]
     Indication: NASAL CONGESTION
     Dosage: 1 SQUIRT, ONCE A DAY
     Route: 045
     Dates: end: 20120301

REACTIONS (5)
  - ARTHRITIS [None]
  - DRUG DEPENDENCE [None]
  - DIABETES MELLITUS [None]
  - CARDIAC DISORDER [None]
  - INCORRECT DRUG ADMINISTRATION DURATION [None]
